FAERS Safety Report 9194336 (Version 2)
Quarter: 2013Q1

REPORT INFORMATION
  Report Type: Spontaneous
  Country: US (occurrence: US)
  Receive Date: 20130326
  Receipt Date: 20130326
  Transmission Date: 20140127
  Serious: Yes (Disabling, Other)
  Sender: FDA-Public Use
  Company Number: US-RB-051387-13

PATIENT
  Age: 56 Year
  Sex: Male

DRUGS (10)
  1. SUBOXONE TABLET [Suspect]
     Indication: DRUG DEPENDENCE
     Route: 060
     Dates: start: 2000, end: 2003
  2. SUBOXONE TABLET [Suspect]
     Route: 060
     Dates: start: 2003, end: 2012
  3. SUBOXONE TABLET [Suspect]
     Dosage: DOSING DETAILS UNKNOWN
     Route: 060
     Dates: end: 20130314
  4. SUBOXONE TABLET [Suspect]
     Route: 060
     Dates: start: 20130315
  5. BUPRENORPHINE [Suspect]
     Indication: DRUG DEPENDENCE
     Route: 060
     Dates: start: 2013, end: 2013
  6. BUPRENORPHINE [Suspect]
     Indication: PROCEDURAL PAIN
     Route: 060
     Dates: start: 2013, end: 2013
  7. SUBOXONE FILM [Suspect]
     Indication: DRUG DEPENDENCE
     Dosage: SUBOXONE FILM; DOSING DETAILS UNKNOWN
     Route: 060
     Dates: start: 2012, end: 2012
  8. ADDERAL [Concomitant]
     Indication: ATTENTION DEFICIT/HYPERACTIVITY DISORDER
     Route: 048
  9. KLONOPIN [Concomitant]
     Indication: ANXIETY
     Route: 048
  10. PLAVIX [Concomitant]
     Indication: ARTERIOSCLEROSIS
     Dosage: UNKNOWN DAILY DOSAGE
     Route: 048

REACTIONS (10)
  - Prescribed overdose [Recovered/Resolved]
  - Constipation [Not Recovered/Not Resolved]
  - Anosmia [Not Recovered/Not Resolved]
  - Ageusia [Not Recovered/Not Resolved]
  - Visual acuity reduced [Not Recovered/Not Resolved]
  - Procedural pain [Recovered/Resolved]
  - Off label use [Recovered/Resolved]
  - Macular hole [Not Recovered/Not Resolved]
  - Stomatitis [Recovered/Resolved]
  - Drug withdrawal syndrome [Not Recovered/Not Resolved]
